FAERS Safety Report 25002336 (Version 1)
Quarter: 2025Q1

REPORT INFORMATION
  Report Type: Spontaneous
  Country: CA (occurrence: CA)
  Receive Date: 20250224
  Receipt Date: 20250224
  Transmission Date: 20250409
  Serious: Yes (Hospitalization, Other)
  Sender: PFIZER
  Company Number: CA-PFIZER INC-202400280800

PATIENT
  Age: 61 Year
  Sex: Male
  Weight: 64 kg

DRUGS (6)
  1. RUXIENCE [Suspect]
     Active Substance: RITUXIMAB-PVVR
     Indication: Rheumatoid arthritis
     Route: 042
     Dates: start: 20231222, end: 20240223
  2. RUXIENCE [Suspect]
     Active Substance: RITUXIMAB-PVVR
     Route: 042
     Dates: start: 20241003
  3. RUXIENCE [Suspect]
     Active Substance: RITUXIMAB-PVVR
     Route: 042
     Dates: start: 20241107
  4. AMLODIPINE [Concomitant]
     Active Substance: AMLODIPINE BESYLATE
  5. COVID-19 VACCINE [Concomitant]
     Indication: COVID-19 immunisation
     Dates: start: 2025, end: 2025
  6. INFLUENZA VIRUS VACCINE [Concomitant]
     Active Substance: INFLUENZA VIRUS VACCINE
     Indication: Immunisation
     Dates: start: 2025, end: 2025

REACTIONS (8)
  - Heart rate irregular [Unknown]
  - Productive cough [Recovered/Resolved]
  - Respiratory tract congestion [Recovered/Resolved]
  - Oropharyngeal pain [Recovered/Resolved]
  - Epistaxis [Unknown]
  - Nasal congestion [Unknown]
  - Localised infection [Unknown]
  - Skin laceration [Unknown]

NARRATIVE: CASE EVENT DATE: 20241001
